FAERS Safety Report 4973155-8 (Version None)
Quarter: 2006Q2

REPORT INFORMATION
  Report Type: 
  Country: None (occurrence: None)
  Receive Date: 20060410
  Receipt Date: 20060328
  Transmission Date: 20061013
  Serious: Yes (Other)
  Sender: FDA-Public Use
  Company Number: 2006043443

PATIENT
  Sex: Male
  Weight: 102.0593 kg

DRUGS (5)
  1. VIAGRA [Suspect]
     Indication: ERECTILE DYSFUNCTION
     Dosage: (50 MG),
     Dates: start: 20050101
  2. AMBIEN [Concomitant]
  3. ALL OTHER THERAPEUTIC PRODUCTS (ALL OTHER THERAPEUTIC PRODUCTS) [Concomitant]
  4. WARFARIN SODIUM [Concomitant]
  5. MILK THISTLE (SILYMARIN) [Concomitant]

REACTIONS (4)
  - BONE DISORDER [None]
  - DRUG INEFFECTIVE [None]
  - GYNAECOMASTIA [None]
  - WEIGHT DECREASED [None]
